FAERS Safety Report 9312883 (Version 3)
Quarter: 2013Q3

REPORT INFORMATION
  Report Type: Spontaneous
  Country: US (occurrence: US)
  Receive Date: 20130528
  Receipt Date: 20130903
  Transmission Date: 20140515
  Serious: Yes (Death, Hospitalization, Other)
  Sender: FDA-Public Use
  Company Number: US-PFIZER INC-2013159383

PATIENT
  Age: 80 Year
  Sex: Female

DRUGS (22)
  1. REVATIO [Suspect]
     Indication: PULMONARY HYPERTENSION
     Dosage: 20 MG, 3X/DAY
     Dates: start: 20100719
  2. SPIRONOLACTONE [Concomitant]
     Dosage: 12.5 MG DAILY
     Route: 048
  3. SPIRONOLACTONE [Concomitant]
     Dosage: 25 MG, 1X/DAY
  4. SUCRALFATE [Concomitant]
     Dosage: 1 G DAILY
     Route: 048
  5. COMBIVENT [Concomitant]
     Dosage: 2 PUFFS EVERY 12 HOURS
     Route: 055
  6. FLEXERIL [Concomitant]
     Dosage: 10 MG DAILY
     Route: 048
  7. FOLIC ACID [Concomitant]
     Dosage: 1.2 MG DAILY
     Route: 048
  8. LEVOTHYROXINE [Concomitant]
     Dosage: 88 UG DAILY
     Route: 048
  9. LEVOTHYROXINE [Concomitant]
     Dosage: 75 UG, 1X/DAY
  10. MIRAPEX [Concomitant]
     Dosage: 0.125 MG, 2 TABLETS AT BED TIME
     Route: 048
  11. PEPCID [Concomitant]
     Dosage: 20 MG DAILY
     Route: 048
  12. SILDENAFIL CITRATE [Concomitant]
     Dosage: 20 MG DAILY
     Route: 048
  13. ATENOLOL [Concomitant]
     Dosage: 25 MG DAILY
     Route: 048
  14. TRIAMCINOLONE [Concomitant]
     Dosage: UNK, THREE TIMES A DAY
     Route: 061
  15. CYCLOBENZAPRINE [Concomitant]
     Dosage: 10 MG, 1X/DAY
  16. LASIX [Concomitant]
     Dosage: 20 MG, 2X/DAY
  17. FAMOTIDINE [Concomitant]
     Dosage: 20 MG, 2X/DAY
  18. NASONEX [Concomitant]
     Dosage: 1 SPRAY BOTH NOSTRILS DAILY
  19. NEXIUM [Concomitant]
     Dosage: 40 MG, 1X/DAY
  20. TRAMADOL [Concomitant]
     Dosage: 50 MG, 1X/DAY
  21. WARFARIN SODIUM [Concomitant]
     Dosage: 1 MG, 1X/DAY
  22. ZOLOFT [Concomitant]
     Dosage: 100 MG, 1X/DAY

REACTIONS (12)
  - Cerebrovascular accident [Fatal]
  - Cardiac failure congestive [Unknown]
  - Fall [Unknown]
  - Head injury [Unknown]
  - Laceration [Unknown]
  - Haemorrhage [Unknown]
  - Subdural haemorrhage [Unknown]
  - Haemorrhage intracranial [Unknown]
  - Disorientation [Unknown]
  - Depressed level of consciousness [Unknown]
  - Movement disorder [Unknown]
  - Contusion [Unknown]
